FAERS Safety Report 9605715 (Version 2)
Quarter: 2013Q4

REPORT INFORMATION
  Report Type: Spontaneous
  Country: IT (occurrence: DE)
  Receive Date: 20131008
  Receipt Date: 20131204
  Transmission Date: 20140711
  Serious: Yes (Hospitalization)
  Sender: FDA-Public Use
  Company Number: DE-FRI-1000049738

PATIENT
  Sex: Male
  Weight: 85 kg

DRUGS (3)
  1. NEBIVOLOL [Suspect]
     Indication: HYPERTENSION
     Dosage: 5 MG
     Route: 048
     Dates: start: 1999, end: 2012
  2. NEBIVOLOL [Suspect]
     Dosage: 5 MG
     Route: 048
     Dates: start: 201309, end: 20130929
  3. ACETYLSALICYLIC ACID [Concomitant]
     Dosage: 300 MG

REACTIONS (3)
  - Muscle spasms [Recovered/Resolved]
  - Psoriasis [Recovered/Resolved]
  - Flatulence [Recovered/Resolved]
